FAERS Safety Report 6792605-8 (Version None)
Quarter: 2010Q2

REPORT INFORMATION
  Report Type: 
  Country: None (occurrence: None)
  Receive Date: 20100624
  Receipt Date: 20081022
  Transmission Date: 20101027
  Serious: No
  Sender: FDA-Public Use
  Company Number: US-PFIZER INC-2008066933

PATIENT
  Sex: Male

DRUGS (6)
  1. XALATAN [Suspect]
     Indication: GLAUCOMA
     Dates: start: 20060101
  2. HYDROCHLOROTHIAZIDE [Concomitant]
  3. TRIAMTERENE [Concomitant]
  4. TOPROL-XL [Concomitant]
  5. LOVASTATIN [Concomitant]
  6. WARFARIN SODIUM [Concomitant]

REACTIONS (2)
  - EYE IRRITATION [None]
  - EYE PAIN [None]
